FAERS Safety Report 4337174-7 (Version None)
Quarter: 2004Q2

REPORT INFORMATION
  Report Type: 
  Country: None (occurrence: None)
  Receive Date: 20040407
  Receipt Date: 20040330
  Transmission Date: 20050107
  Serious: Yes (Death, Other)
  Sender: FDA-Public Use
  Company Number: 2004US000393

PATIENT
  Age: 42 Year
  Sex: Female

DRUGS (1)
  1. PROGRAF [Suspect]
     Indication: LUNG TRANSPLANT

REACTIONS (3)
  - ELECTROCARDIOGRAM QT PROLONGED [None]
  - LUNG TRANSPLANT REJECTION [None]
  - MULTI-ORGAN FAILURE [None]
